FAERS Safety Report 11862708 (Version 3)
Quarter: 2016Q1

REPORT INFORMATION
  Report Type: Spontaneous
  Country: US (occurrence: US)
  Receive Date: 20151223
  Receipt Date: 20160229
  Transmission Date: 20160526
  Serious: Yes (Hospitalization)
  Sender: FDA-Public Use
  Company Number: US-PFIZER INC-2015442010

PATIENT
  Age: 67 Year
  Sex: Female
  Weight: 94.8 kg

DRUGS (5)
  1. COMPAZINE [Concomitant]
     Active Substance: PROCHLORPERAZINE MALEATE
     Indication: ABDOMINAL DISCOMFORT
     Dosage: 10MG, TABLET, TWICE A DAY
     Route: 048
  2. METRAZOL [Concomitant]
     Active Substance: PENTETRAZOL
     Dosage: AT 2.5MG, TABLET, ONCE A DAY
     Route: 048
     Dates: start: 201509
  3. IBRANCE [Suspect]
     Active Substance: PALBOCICLIB
     Dosage: ONCE A DAY, PILL
     Route: 048
     Dates: start: 201512, end: 201601
  4. IBRANCE [Suspect]
     Active Substance: PALBOCICLIB
     Indication: BREAST CANCER
     Dosage: 100 MG ONCE A DAY
     Route: 048
     Dates: start: 20151228, end: 201601
  5. LETROZOLE. [Concomitant]
     Active Substance: LETROZOLE
     Dosage: UNK
     Dates: start: 201511

REACTIONS (5)
  - Pneumonia [Recovering/Resolving]
  - Malaise [Recovering/Resolving]
  - Pyrexia [Unknown]
  - Blood disorder [Unknown]
  - Thrombosis [Recovering/Resolving]

NARRATIVE: CASE EVENT DATE: 201601
